FAERS Safety Report 18638747 (Version 1)
Quarter: 2020Q4

REPORT INFORMATION
  Report Type: Spontaneous
  Country: US (occurrence: US)
  Receive Date: 20201218
  Receipt Date: 20201218
  Transmission Date: 20210114
  Serious: No
  Sender: FDA-Public Use
  Company Number: US-ROCHE-2400210

PATIENT
  Age: 65 Year
  Sex: Female
  Weight: 63.11 kg

DRUGS (5)
  1. DAPSONE. [Concomitant]
     Active Substance: DAPSONE
  2. ACYCLOVIR. [Concomitant]
     Active Substance: ACYCLOVIR
  3. GAZYVA [Suspect]
     Active Substance: OBINUTUZUMAB
     Indication: CHRONIC LYMPHOCYTIC LEUKAEMIA
     Route: 042
  4. IBRUTINIB [Concomitant]
     Active Substance: IBRUTINIB
     Indication: CHRONIC LYMPHOCYTIC LEUKAEMIA
  5. ALLOPURINOL. [Concomitant]
     Active Substance: ALLOPURINOL

REACTIONS (5)
  - Acne [Unknown]
  - Nausea [Unknown]
  - Hypotension [Unknown]
  - Rash [Unknown]
  - Dizziness [Unknown]

NARRATIVE: CASE EVENT DATE: 20190321
